FAERS Safety Report 18611254 (Version 1)
Quarter: 2020Q4

REPORT INFORMATION
  Report Type: Spontaneous
  Country: US (occurrence: US)
  Receive Date: 20201214
  Receipt Date: 20201214
  Transmission Date: 20210114
  Serious: No
  Sender: FDA-Public Use
  Company Number: None

PATIENT
  Age: 17 Year
  Weight: 83.25 kg

DRUGS (1)
  1. CHLORHEXIDINE [Suspect]
     Active Substance: CHLORHEXIDINE
     Indication: ANTIBIOTIC PROPHYLAXIS
     Route: 061
     Dates: start: 20201202, end: 20201202

REACTIONS (10)
  - Lymph node pain [None]
  - Feeling hot [None]
  - Hypersensitivity [None]
  - Peripheral swelling [None]
  - Injection site erythema [None]
  - Erythema [None]
  - Swelling [None]
  - Injection site swelling [None]
  - Headache [None]
  - Nodule [None]

NARRATIVE: CASE EVENT DATE: 20201205
